FAERS Safety Report 4597178-6 (Version None)
Quarter: 2005Q1

REPORT INFORMATION
  Report Type: 
  Country: None (occurrence: None)
  Receive Date: 20050224
  Receipt Date: 20040816
  Transmission Date: 20050727
  Serious: Yes (Other)
  Sender: FDA-Public Use
  Company Number: 200510159BBE

PATIENT
  Sex: Male

DRUGS (5)
  1. KOATE [Suspect]
     Indication: FACTOR VIII DEFICIENCY
     Dates: start: 19850101, end: 19890101
  2. MONOCLATE P (FACTOR VIII (ANTIHAEMOPHILIC FACTOR)) [Suspect]
     Dates: start: 19900420
  3. MONOCLATE P (FACTOR VIII (ANTIHAEMOPHILIC FACTOR)) [Suspect]
     Dates: start: 19901121
  4. MONOCLATE P (FACTOR VIII (ANTIHAEMOPHILIC FACTOR)) [Suspect]
     Dates: start: 19901207
  5. AHF-M (ANTIHAEMOPHLILIC FACTOR) [Suspect]
     Dates: start: 19900101

REACTIONS (1)
  - HEPATITIS C VIRUS [None]
